FAERS Safety Report 5514946-4 (Version None)
Quarter: 2007Q4

REPORT INFORMATION
  Report Type: 
  Country: None (occurrence: None)
  Receive Date: 20071113
  Receipt Date: 20061017
  Transmission Date: 20080405
  Serious: No
  Sender: FDA-Public Use
  Company Number: A0623885A

PATIENT
  Age: 85 Year
  Sex: Male

DRUGS (14)
  1. COREG [Suspect]
     Indication: HYPERTENSION
     Dosage: 3.125MG TWICE PER DAY
     Route: 048
     Dates: start: 20060101
  2. COUMADIN [Concomitant]
  3. COLACE [Concomitant]
  4. XENICAL [Concomitant]
  5. PROCRIT [Concomitant]
  6. RESTORIL [Concomitant]
  7. PROSCAR [Concomitant]
  8. FLOMAX [Concomitant]
  9. SYNTHROID [Concomitant]
  10. PRILOSEC [Concomitant]
  11. ZOCOR [Concomitant]
  12. LASIX [Concomitant]
  13. INDERAL [Concomitant]
  14. LEVAQUIN [Concomitant]

REACTIONS (2)
  - POLLAKIURIA [None]
  - URINARY TRACT INFECTION [None]
